FAERS Safety Report 16483796 (Version 1)
Quarter: 2019Q2

REPORT INFORMATION
  Report Type: Spontaneous
  Country: US (occurrence: US)
  Receive Date: 20190627
  Receipt Date: 20190627
  Transmission Date: 20190711
  Serious: No
  Sender: FDA-Public Use
  Company Number: US-PFIZER INC-2019247994

PATIENT
  Age: 50 Year
  Sex: Male
  Weight: 77 kg

DRUGS (4)
  1. CHANTIX [Suspect]
     Active Substance: VARENICLINE TARTRATE
     Dosage: 1 MG, 2X/DAY
     Route: 048
     Dates: start: 20190610, end: 20190613
  2. DOXYCYCLINE. [Concomitant]
     Active Substance: DOXYCYCLINE
     Dosage: UNK
  3. CHANTIX [Suspect]
     Active Substance: VARENICLINE TARTRATE
     Indication: SMOKING CESSATION THERAPY
     Dosage: 0.5 MG, 2X/DAY
     Route: 048
     Dates: start: 20190610, end: 20190613
  4. DIOCYCLIN [Concomitant]
     Indication: SINUS DISORDER
     Dosage: 100 MG, 2X/DAY
     Route: 048
     Dates: start: 20190610

REACTIONS (6)
  - Feeling abnormal [Unknown]
  - Oropharyngeal pain [Unknown]
  - Disturbance in attention [Unknown]
  - Vomiting [Unknown]
  - Sluggishness [Unknown]
  - Pharyngeal swelling [Unknown]

NARRATIVE: CASE EVENT DATE: 20190613
